FAERS Safety Report 20795015 (Version 1)
Quarter: 2022Q2

REPORT INFORMATION
  Report Type: Spontaneous
  Country: US (occurrence: None)
  Receive Date: 20220505
  Receipt Date: 20220505
  Transmission Date: 20220721
  Serious: Yes (Life-Threatening, Hospitalization, Other)
  Sender: FDA-Public Use
  Company Number: None

PATIENT
  Age: 77 Year
  Sex: Male
  Weight: 84.3 kg

DRUGS (1)
  1. WARFARIN [Suspect]
     Active Substance: WARFARIN
     Dosage: FREQUENCY : DAILY;?
     Route: 048

REACTIONS (4)
  - Fall [None]
  - Haemorrhage [None]
  - Mass [None]
  - Gastrointestinal disorder [None]

NARRATIVE: CASE EVENT DATE: 20210731
